FAERS Safety Report 8242904 (Version 2)
Quarter: 2012Q4

REPORT INFORMATION
  Report Type: 
  Country: US (occurrence: US)
  Receive Date: 20111114
  Receipt Date: 20121120
  Transmission Date: 20130627
  Serious: Yes (Other)
  Sender: FDA-Public Use
  Company Number: US-ROCHE-1012042

PATIENT
  Sex: Female
  Weight: 79.45 kg

DRUGS (3)
  1. ACCUTANE [Suspect]
     Indication: ACNE
     Route: 065
     Dates: start: 1982, end: 1983
  2. ACCUTANE [Suspect]
     Route: 065
     Dates: start: 19931024, end: 19940328
  3. ACCUTANE [Suspect]
     Route: 065
     Dates: start: 19960703, end: 19960922

REACTIONS (4)
  - Crohn^s disease [Unknown]
  - Inflammatory bowel disease [Unknown]
  - Depression [Unknown]
  - Injury [Unknown]
